FAERS Safety Report 15794397 (Version 3)
Quarter: 2021Q4

REPORT INFORMATION
  Report Type: Report from Study
  Country: CA (occurrence: CA)
  Receive Date: 20190107
  Receipt Date: 20211102
  Transmission Date: 20220303
  Serious: Yes (Other)
  Sender: FDA-Public Use
  Company Number: CA-JNJFOC-20190103354

PATIENT
  Age: 37 Year
  Sex: Female

DRUGS (1)
  1. SIMPONI [Suspect]
     Active Substance: GOLIMUMAB
     Indication: Ankylosing spondylitis
     Route: 058
     Dates: start: 20121211

REACTIONS (1)
  - Respiratory tract infection [Not Recovered/Not Resolved]
